FAERS Safety Report 6397956-7 (Version None)
Quarter: 2009Q4

REPORT INFORMATION
  Report Type: 
  Country: None (occurrence: None)
  Receive Date: 20091013
  Receipt Date: 20091006
  Transmission Date: 20100525
  Serious: No
  Sender: FDA-Public Use
  Company Number: US-JNJFOC-20091002224

PATIENT
  Sex: Female
  Weight: 61.24 kg

DRUGS (1)
  1. FENTANYL TRANSDERMAL SYSTEM [Suspect]
     Indication: COMPRESSION FRACTURE
     Route: 062
     Dates: start: 20091006

REACTIONS (1)
  - DRUG ADMINISTERED AT INAPPROPRIATE SITE [None]
